FAERS Safety Report 6940497-6 (Version None)
Quarter: 2010Q3

REPORT INFORMATION
  Report Type: 
  Country: None (occurrence: None)
  Receive Date: 20100825
  Receipt Date: 20100825
  Transmission Date: 20110219
  Serious: Yes (Hospitalization, Other)
  Sender: FDA-Public Use
  Company Number: PK-JNJFOC-20100801770

PATIENT
  Age: 2 Year
  Sex: Female

DRUGS (2)
  1. IMODIUM [Suspect]
     Route: 065
  2. IMODIUM [Suspect]
     Indication: DIARRHOEA
     Dosage: 6-30 DROPS PER DAY
     Route: 065

REACTIONS (3)
  - ABDOMINAL DISTENSION [None]
  - ILEUS PARALYTIC [None]
  - INCORRECT DOSE ADMINISTERED [None]
